FAERS Safety Report 14873554 (Version 1)
Quarter: 2018Q2

REPORT INFORMATION
  Report Type: Spontaneous
  Country: US (occurrence: US)
  Receive Date: 20180424
  Receipt Date: 20180424
  Transmission Date: 20180711
  Serious: No
  Sender: FDA-Public Use
  Company Number: None

PATIENT
  Age: 38 Year
  Sex: Female

DRUGS (1)
  1. HAEGARDA [Suspect]
     Active Substance: HUMAN C1-ESTERASE INHIBITOR
     Indication: COMPLEMENT DEFICIENCY DISEASE
     Dosage: ?          OTHER FREQUENCY:EVERY 3 TO 4 DAYS;?
     Route: 058
     Dates: start: 20180119

REACTIONS (1)
  - Product container issue [None]

NARRATIVE: CASE EVENT DATE: 20180417
